FAERS Safety Report 8832460 (Version 1)
Quarter: 2012Q4

REPORT INFORMATION
  Report Type: Spontaneous
  Country: US (occurrence: None)
  Receive Date: 20121005
  Receipt Date: 20121005
  Transmission Date: 20130627
  Serious: Yes (Hospitalization)
  Sender: FDA-Public Use
  Company Number: None

PATIENT
  Age: 36 Year
  Sex: Male

DRUGS (1)
  1. SULFAMETHOXAZOLE/TRIMETHOPRIM [Suspect]
     Indication: CELLULITIS
     Dosage: 800/160 MG BID PO
     Route: 048
     Dates: start: 20120516, end: 20120615

REACTIONS (10)
  - Malaise [None]
  - Rash [None]
  - Liver function test abnormal [None]
  - Hepatosplenomegaly [None]
  - Renal failure acute [None]
  - Leukocytosis [None]
  - Lymphocyte count increased [None]
  - Eosinophilia [None]
  - Hepatotoxicity [None]
  - Tubulointerstitial nephritis [None]
